FAERS Safety Report 23958534 (Version 1)
Quarter: 2024Q2

REPORT INFORMATION
  Report Type: Spontaneous
  Country: US (occurrence: US)
  Receive Date: 20240610
  Receipt Date: 20240610
  Transmission Date: 20240716
  Serious: No
  Sender: FDA-Public Use
  Company Number: US-Teikoku Pharma USA-TPU2023-00031

PATIENT
  Age: 88 Year
  Sex: Male

DRUGS (4)
  1. LIDOCAINE [Suspect]
     Active Substance: LIDOCAINE
     Indication: Pain
  2. LIDOCAINE [Suspect]
     Active Substance: LIDOCAINE
     Indication: Arthralgia
     Route: 061
  3. LIDOCAINE [Concomitant]
     Active Substance: LIDOCAINE
  4. LIDOCAINE [Concomitant]
     Active Substance: LIDOCAINE

REACTIONS (3)
  - Cataract operation [Unknown]
  - Headache [Unknown]
  - Fatigue [Unknown]

NARRATIVE: CASE EVENT DATE: 20230127
